FAERS Safety Report 25935172 (Version 1)
Quarter: 2025Q4

REPORT INFORMATION
  Report Type: Spontaneous
  Country: GB (occurrence: GB)
  Receive Date: 20251017
  Receipt Date: 20251017
  Transmission Date: 20260119
  Serious: Yes (Other)
  Sender: Kenvue
  Company Number: None

PATIENT

DRUGS (5)
  1. CETIRIZINE HYDROCHLORIDE [Suspect]
     Active Substance: CETIRIZINE HYDROCHLORIDE
     Indication: Rash
     Dosage: 10 MILLIGRAM, ONCE A DAY
     Route: 065
     Dates: start: 20250923, end: 20250925
  2. CETIRIZINE HYDROCHLORIDE [Suspect]
     Active Substance: CETIRIZINE HYDROCHLORIDE
     Indication: Skin reaction
     Dosage: 10 MILLIGRAM, ONCE A DAY
     Route: 065
     Dates: start: 20250919
  3. FOLIC ACID [Concomitant]
     Active Substance: FOLIC ACID
     Indication: Vitamin supplementation
     Dosage: 400 MICROGRAM
     Route: 065
  4. exocream [Concomitant]
     Indication: Rash
     Dosage: UNK
     Route: 065
     Dates: start: 20250923
  5. HYDROCORTISONE [Concomitant]
     Active Substance: HYDROCORTISONE
     Indication: Rash
     Dosage: UNK
     Route: 065
     Dates: start: 20250923

REACTIONS (2)
  - Maternal exposure during pregnancy [Unknown]
  - Anaphylactic reaction [Recovered/Resolved]

NARRATIVE: CASE EVENT DATE: 20250923
